FAERS Safety Report 13083312 (Version 2)
Quarter: 2017Q1

REPORT INFORMATION
  Report Type: Report from Study
  Country: None (occurrence: CA)
  Receive Date: 20170104
  Receipt Date: 20170203
  Transmission Date: 20170428
  Serious: Yes (Hospitalization, Other)
  Sender: FDA-Public Use
  Company Number: CA-ABBVIE-16K-028-1809646-00

PATIENT
  Age: 24 Year
  Sex: Male

DRUGS (2)
  1. HUMIRA [Suspect]
     Active Substance: ADALIMUMAB
     Indication: CROHN^S DISEASE
     Route: 058
     Dates: start: 20091111, end: 20161207
  2. HUMIRA [Suspect]
     Active Substance: ADALIMUMAB
     Route: 058
     Dates: start: 20170125

REACTIONS (5)
  - Speech disorder [Unknown]
  - Malaise [Not Recovered/Not Resolved]
  - Grip strength decreased [Unknown]
  - Heart rate decreased [Unknown]
  - Meningitis viral [Recovered/Resolved]

NARRATIVE: CASE EVENT DATE: 201612
